FAERS Safety Report 4756536-7 (Version None)
Quarter: 2005Q3

REPORT INFORMATION
  Report Type: 
  Country: None (occurrence: None)
  Receive Date: 20050830
  Receipt Date: 20050726
  Transmission Date: 20060218
  Serious: No
  Sender: FDA-Public Use
  Company Number: US-GLAXOSMITHKLINE-A0567750A

PATIENT
  Sex: Male

DRUGS (5)
  1. WELLBUTRIN XL [Suspect]
     Indication: DRUG USE FOR UNKNOWN INDICATION
     Dosage: 300MG PER DAY
     Route: 048
  2. VISTARIL [Concomitant]
  3. MORPHINE [Concomitant]
  4. VICODIN ES [Concomitant]
  5. LOVASTATIN [Concomitant]

REACTIONS (4)
  - ANXIETY [None]
  - DRUG INEFFECTIVE [None]
  - INSOMNIA [None]
  - PANIC ATTACK [None]
